FAERS Safety Report 9417802 (Version 2)
Quarter: 2013Q3

REPORT INFORMATION
  Report Type: Spontaneous
  Country: IN (occurrence: IN)
  Receive Date: 20130724
  Receipt Date: 20130813
  Transmission Date: 20140515
  Serious: Yes (Hospitalization)
  Sender: FDA-Public Use
  Company Number: IN-GLAXOSMITHKLINE-B0910217A

PATIENT
  Age: 55 Year
  Sex: Male

DRUGS (1)
  1. VOTRIENT [Suspect]
     Indication: RENAL CELL CARCINOMA RECURRENT
     Dosage: 800MG PER DAY

REACTIONS (3)
  - Renal failure [Recovering/Resolving]
  - Proteinuria [Recovering/Resolving]
  - Hypertension [Recovering/Resolving]
